FAERS Safety Report 4425824-6 (Version None)
Quarter: 2004Q3

REPORT INFORMATION
  Report Type: 
  Country: None (occurrence: None)
  Receive Date: 20040810
  Receipt Date: 20040727
  Transmission Date: 20050211
  Serious: Yes (Hospitalization)
  Sender: FDA-Public Use
  Company Number: F01200402259

PATIENT
  Age: 76 Year
  Sex: Male

DRUGS (7)
  1. (OXALIPLATIN)-SOLUTION- 130 MG/M2 [Suspect]
     Indication: NON-SMALL CELL LUNG CANCER
     Dosage: 130 MG/M2 Q3W INTRAVENOUS
     Route: 042
     Dates: start: 20040618, end: 20040618
  2. GEMCITABINE-SOLUTION-1000 MG/M2 [Suspect]
     Dosage: 1000 MG/M2 Q3W INTRAVENOUS
     Route: 042
     Dates: start: 20040618, end: 20040618
  3. PLAVIX [Concomitant]
  4. ASPIRIN [Concomitant]
  5. ATENOLOL [Concomitant]
  6. LIPITOR [Concomitant]
  7. PROTONIX [Concomitant]

REACTIONS (4)
  - ACUTE MYOCARDIAL INFARCTION [None]
  - DEHYDRATION [None]
  - MEDICAL DEVICE COMPLICATION [None]
  - METASTASES TO LUNG [None]
